FAERS Safety Report 8048315-2 (Version None)
Quarter: 2012Q1

REPORT INFORMATION
  Report Type: 
  Country: None (occurrence: None)
  Receive Date: 20120110
  Receipt Date: 20111227
  Transmission Date: 20120608
  Serious: Yes (Death)
  Sender: FDA-Public Use
  Company Number: ACO_28697_2011

PATIENT
  Age: 44 Year
  Sex: Female

DRUGS (10)
  1. GABAPENTIN [Suspect]
     Indication: PRODUCT USED FOR UNKNOWN INDICATION
     Dosage: 300 MG, QID, ORAL
     Route: 048
  2. GILENYA [Suspect]
     Indication: PRODUCT USED FOR UNKNOWN INDICATION
     Dosage: ORAL
     Route: 048
  3. AMPHETAMINE SULFATE [Suspect]
     Indication: PRODUCT USED FOR UNKNOWN INDICATION
     Dosage: 10 MG, BID
  4. HYDROCODONE BITARTRATE + ACETAMINOPHEN [Suspect]
     Indication: PAIN
     Dosage: 10/500 MG
  5. ZANAFLEX [Suspect]
     Indication: MUSCLE RELAXANT THERAPY
  6. DIAZEPAM [Suspect]
     Indication: PRODUCT USED FOR UNKNOWN INDICATION
     Dosage: 10 MG, BID
  7. TYSABRI [Suspect]
     Indication: PRODUCT USED FOR UNKNOWN INDICATION
     Dosage: IV INFUSION
     Route: 042
  8. BACLOFEN [Suspect]
     Indication: PRODUCT USED FOR UNKNOWN INDICATION
  9. CITALOPRAM HYDROBROMIDE [Suspect]
     Indication: DEPRESSION
     Dosage: 20 MG
  10. SINGULAIR [Suspect]
     Indication: PRODUCT USED FOR UNKNOWN INDICATION
     Dosage: 10 MG, QD

REACTIONS (4)
  - LOWER LIMB FRACTURE [None]
  - MOBILITY DECREASED [None]
  - FALL [None]
  - ASTHENIA [None]
